FAERS Safety Report 10583885 (Version 3)
Quarter: 2014Q4

REPORT INFORMATION
  Report Type: Spontaneous
  Country: JP (occurrence: JP)
  Receive Date: 20141114
  Receipt Date: 20141124
  Transmission Date: 20150529
  Serious: Yes (Other)
  Sender: FDA-Public Use
  Company Number: JP-BAYER-2014-162924

PATIENT
  Sex: Female

DRUGS (4)
  1. YAZ [Suspect]
     Active Substance: DROSPIRENONE\ETHINYL ESTRADIOL
     Indication: DYSMENORRHOEA
     Dosage: UNK
     Route: 048
     Dates: start: 20141027, end: 20141104
  2. WYPAX [Concomitant]
     Active Substance: LORAZEPAM
     Route: 048
  3. CYSTAROL [Concomitant]
     Indication: MYOCARDIAL ISCHAEMIA
     Route: 048
  4. U PAN [Concomitant]
     Active Substance: LORAZEPAM
     Route: 048

REACTIONS (29)
  - Suicidal ideation [None]
  - Musculoskeletal stiffness [None]
  - Headache [None]
  - Asthenia [None]
  - Decreased appetite [None]
  - Back pain [None]
  - Gastritis [None]
  - Weight decreased [None]
  - Rash pruritic [Unknown]
  - Malaise [None]
  - Adnexa uteri pain [None]
  - Palpitations [None]
  - Pain in extremity [None]
  - Blood pressure increased [None]
  - Blood triglycerides increased [None]
  - Somnolence [None]
  - Metrorrhagia [None]
  - Limb discomfort [None]
  - Emotional distress [None]
  - Anxiety [None]
  - Nausea [None]
  - Abdominal discomfort [None]
  - Toothache [None]
  - Gingival swelling [None]
  - Dizziness [None]
  - Mood altered [None]
  - Stress [None]
  - Vaginal discharge [None]
  - Abdominal pain [None]

NARRATIVE: CASE EVENT DATE: 2014
